FAERS Safety Report 7763479-3 (Version None)
Quarter: 2011Q3

REPORT INFORMATION
  Report Type: 
  Country: None (occurrence: None)
  Receive Date: 20110920
  Receipt Date: 20110913
  Transmission Date: 20111222
  Serious: Yes (Other)
  Sender: FDA-Public Use
  Company Number: US-BAXTER-2011BH028902

PATIENT
  Sex: Female

DRUGS (2)
  1. PHENERGAN HCL [Suspect]
     Indication: NAUSEA
     Route: 042
     Dates: start: 20110501, end: 20110501
  2. SODIUM CHLORIDE 0.9% IN PLASTIC CONTAINER [Suspect]
     Indication: MEDICATION DILUTION
     Route: 042
     Dates: start: 20110501, end: 20110501

REACTIONS (1)
  - DEEP VEIN THROMBOSIS [None]
